FAERS Safety Report 4416934-8 (Version None)
Quarter: 2004Q3

REPORT INFORMATION
  Report Type: 
  Country: None (occurrence: None)
  Receive Date: 20040806
  Receipt Date: 20040722
  Transmission Date: 20050211
  Serious: Yes (Other)
  Sender: FDA-Public Use
  Company Number: 200412412JP

PATIENT
  Age: 38 Year
  Sex: Female

DRUGS (6)
  1. KETEK [Suspect]
     Indication: BRONCHITIS
     Route: 048
     Dates: start: 20040716, end: 20040717
  2. KETEK [Suspect]
     Indication: PULMONARY TUBERCULOSIS
     Route: 048
     Dates: start: 20040716, end: 20040717
  3. MUCODYNE [Concomitant]
     Dates: start: 20040714, end: 20040717
  4. ASTOMIN [Concomitant]
     Dates: start: 20040714, end: 20040717
  5. FLAVERIC [Concomitant]
     Dates: start: 20040714, end: 20040717
  6. THEO-DUR [Concomitant]
     Dates: start: 20040714, end: 20040717

REACTIONS (3)
  - BACK PAIN [None]
  - PAIN EXACERBATED [None]
  - RHABDOMYOLYSIS [None]
